FAERS Safety Report 6300069-3 (Version None)
Quarter: 2009Q3

REPORT INFORMATION
  Report Type: 
  Country: None (occurrence: None)
  Receive Date: 20090803
  Receipt Date: 20090720
  Transmission Date: 20100115
  Serious: Yes (Death, Hospitalization)
  Sender: FDA-Public Use
  Company Number: ADR7782009

PATIENT
  Age: 84 Year
  Sex: Female

DRUGS (2)
  1. ALENDRONATE SODIUM [Suspect]
     Indication: OSTEOPOROSIS
     Dosage: 70 MG WEEKLY ORAL USE
     Route: 048
  2. FOSAMAX [Concomitant]

REACTIONS (5)
  - DEHYDRATION [None]
  - FALL [None]
  - HYPERTENSION [None]
  - OESOPHAGITIS [None]
  - PRODUCT SUBSTITUTION ISSUE [None]
